FAERS Safety Report 8841804 (Version 1)
Quarter: 2012Q4

REPORT INFORMATION
  Report Type: 
  Country: IT (occurrence: IT)
  Receive Date: 20121016
  Receipt Date: 20121016
  Transmission Date: 20130627
  Serious: Yes (Other)
  Sender: FDA-Public Use
  Company Number: IT-JNJFOC-20121005835

PATIENT
  Age: 55 Year
  Sex: Male

DRUGS (4)
  1. REMICADE [Suspect]
     Indication: COLITIS ULCERATIVE
     Dosage: 100 mg strength
     Route: 042
     Dates: start: 20120914
  2. REMICADE [Suspect]
     Indication: COLITIS ULCERATIVE
     Route: 042
     Dates: start: 20120927, end: 20120927
  3. URBASON [Concomitant]
     Indication: COLITIS ULCERATIVE
     Route: 048
  4. HYDROCORTISONE SODIUM SUCCINATE [Concomitant]
     Indication: PREMEDICATION
     Route: 042
     Dates: start: 20120927, end: 20120927

REACTIONS (5)
  - Syncope [Recovered/Resolved]
  - Infusion related reaction [Recovered/Resolved]
  - Hyperpyrexia [Recovered/Resolved]
  - Hypotension [Recovered/Resolved]
  - Urticaria [Unknown]
